FAERS Safety Report 4775032-4 (Version None)
Quarter: 2005Q3

REPORT INFORMATION
  Report Type: 
  Country: None (occurrence: None)
  Receive Date: 20050920
  Receipt Date: 20050913
  Transmission Date: 20060218
  Serious: Yes (Death, Other)
  Sender: FDA-Public Use
  Company Number: 2005104566

PATIENT
  Sex: Male

DRUGS (12)
  1. PREDNISONE [Suspect]
     Indication: ILL-DEFINED DISORDER
     Dosage: 30 MG (5 MG, 6 IN 1 D)
  2. AMLODIPINE [Suspect]
     Indication: ILL-DEFINED DISORDER
     Dosage: 10 MG (5 MG, 2 IN 1 D)
  3. TIOTROPIUM (TIOTROPIUM) [Suspect]
     Indication: ILL-DEFINED DISORDER
     Dosage: 18 MCG ( 18 MCG , 1 IN 1)`
  4. COMBIVET (IPRATROPIUM BROMIDE, SALBUTAMOL SULFATE) [Suspect]
     Indication: ILL-DEFINED DISORDER
     Dosage: 10 ML (2.5 ML, 4 IN 1 D), INHALATION
     Route: 055
  5. SERETIDE (FLUTICASONE PROPIONATE, SALMETEROL XINAFOATE) [Suspect]
  6. CIPROFLOXACIN HCL [Concomitant]
  7. FUROSEMIDE [Concomitant]
  8. LIDOCAINE HCL [Concomitant]
  9. CLOTRIMAZOLE (CLOTRIMAZOLE) [Concomitant]
  10. TRIMETHOPRIM SULFATE (TRIMETHOPRIM SULFATE) [Concomitant]
  11. ALL OTHER THERAPEUTIC PRODUCTS (ALL OTHER THERAPEUTIC PRODUCTS) [Concomitant]
  12. SODIUM CHLORIDE [Suspect]
     Indication: ILL-DEFINED DISORDER

REACTIONS (4)
  - CARDIAC FAILURE CONGESTIVE [None]
  - CHRONIC OBSTRUCTIVE PULMONARY DISEASE [None]
  - CYSTITIS [None]
  - DIZZINESS [None]
